FAERS Safety Report 6634156-7 (Version None)
Quarter: 2010Q1

REPORT INFORMATION
  Report Type: 
  Country: None (occurrence: None)
  Receive Date: 20100315
  Receipt Date: 20100311
  Transmission Date: 20100710
  Serious: Yes (Death)
  Sender: FDA-Public Use
  Company Number: JP-JNJFOC-20090908935

PATIENT
  Age: 53 Year
  Sex: Female
  Weight: 50 kg

DRUGS (10)
  1. ITRIZOLE [Suspect]
     Indication: DRUG USE FOR UNKNOWN INDICATION
     Route: 041
     Dates: start: 20090716, end: 20090729
  2. ITRIZOLE [Suspect]
     Route: 041
     Dates: start: 20090716, end: 20090729
  3. MEROPENEM [Suspect]
     Indication: SEPSIS
     Route: 042
     Dates: start: 20090716, end: 20090729
  4. ZYVOX [Concomitant]
     Indication: SEPSIS
     Route: 042
     Dates: start: 20090722, end: 20090804
  5. NEUTROGIN [Concomitant]
     Indication: NEUTROPENIA
     Route: 058
     Dates: start: 20090722, end: 20090730
  6. ACYCRIL [Concomitant]
     Indication: HERPES ZOSTER
     Route: 042
     Dates: start: 20090727, end: 20090802
  7. PREDONINE [Concomitant]
     Indication: PYREXIA
     Route: 048
     Dates: start: 20090712, end: 20090808
  8. PREDONINE [Concomitant]
     Route: 048
     Dates: start: 20090712, end: 20090808
  9. NORVASC [Concomitant]
     Indication: HYPERTENSION
     Route: 048
     Dates: end: 20090829
  10. GASTER D [Concomitant]
     Indication: GASTRITIS
     Route: 048
     Dates: end: 20090822

REACTIONS (6)
  - ALANINE AMINOTRANSFERASE INCREASED [None]
  - BLOOD LACTATE DEHYDROGENASE INCREASED [None]
  - BLOOD UREA DECREASED [None]
  - HERPES ZOSTER [None]
  - SEPSIS [None]
  - WHITE BLOOD CELL COUNT DECREASED [None]
